FAERS Safety Report 9855400 (Version 1)
Quarter: 2014Q1

REPORT INFORMATION
  Report Type: Spontaneous
  Country: US (occurrence: None)
  Receive Date: 20140129
  Receipt Date: 20140129
  Transmission Date: 20141002
  Serious: No
  Sender: FDA-Public Use
  Company Number: None

PATIENT
  Age: 64 Year
  Sex: Female

DRUGS (1)
  1. AFINITOR 2.5 MG NOVARTIS [Suspect]
     Indication: RENAL CELL CARCINOMA
     Route: 048
     Dates: start: 20130921, end: 20140115

REACTIONS (1)
  - Drug ineffective [None]
